FAERS Safety Report 7508370-2 (Version None)
Quarter: 2011Q2

REPORT INFORMATION
  Report Type: 
  Country: None (occurrence: None)
  Receive Date: 20110527
  Receipt Date: 20110523
  Transmission Date: 20111010
  Serious: No
  Sender: FDA-Public Use
  Company Number: US-PFIZER INC-2011113418

PATIENT
  Sex: Male

DRUGS (3)
  1. MILNACIPRAN [Suspect]
     Dosage: UNK
     Route: 048
  2. LYRICA [Suspect]
     Indication: PAIN IN EXTREMITY
  3. LYRICA [Suspect]
     Indication: OEDEMA
     Dosage: 50 MG, 3X/DAY
     Route: 048

REACTIONS (1)
  - OEDEMA PERIPHERAL [None]
